FAERS Safety Report 23278571 (Version 1)
Quarter: 2023Q4

REPORT INFORMATION
  Report Type: Spontaneous
  Country: US (occurrence: US)
  Receive Date: 20231208
  Receipt Date: 20231208
  Transmission Date: 20240110
  Serious: Yes (Other)
  Sender: FDA-Public Use
  Company Number: US-ENDO-CASE-0049155

PATIENT
  Sex: Male

DRUGS (5)
  1. OPANA ER [Suspect]
     Active Substance: OXYMORPHONE HYDROCHLORIDE
  2. ENDODAN [Suspect]
     Active Substance: ASPIRIN\OXYCODONE HYDROCHLORIDE
  3. DEPODUR [Suspect]
     Active Substance: MORPHINE SULFATE
  4. MORPHINE SULFATE [Suspect]
     Active Substance: MORPHINE SULFATE
  5. FENTANYL CITRATE [Suspect]
     Active Substance: FENTANYL CITRATE

REACTIONS (6)
  - Dependence [Unknown]
  - Amnesia [Unknown]
  - Tooth loss [Unknown]
  - Decreased appetite [Unknown]
  - Weight decreased [Unknown]
  - Sexual dysfunction [Unknown]
